FAERS Safety Report 26205820 (Version 1)
Quarter: 2025Q4

REPORT INFORMATION
  Report Type: Spontaneous
  Country: US (occurrence: US)
  Receive Date: 20251229
  Receipt Date: 20251229
  Transmission Date: 20260117
  Serious: No
  Sender: TOLMAR
  Company Number: US-Tolmar-TLM-2025-09365

PATIENT

DRUGS (4)
  1. ELIGARD [Suspect]
     Active Substance: LEUPROLIDE ACETATE
     Indication: Prostate cancer
     Dosage: NOT ADMINISTERED?NDC: 62935-227-10?LOT: 15187CUS?EXP: 5/2026
  2. ELIGARD [Suspect]
     Active Substance: LEUPROLIDE ACETATE
     Dosage: REPLACEMENT DOSE
  3. ELIGARD [Suspect]
     Active Substance: LEUPROLIDE ACETATE
     Dosage: NOT ADMINISTERED?NDC: 62935-227-10?LOT: 15187CUS?EXP: 5/2026
     Dates: start: 20240508
  4. DEVICE [Suspect]
     Active Substance: DEVICE
     Indication: Prostate cancer
     Dosage: NDC: 62935-227-10?LOT: 15187CUS?EXP: 5/2026

REACTIONS (3)
  - Intercepted product preparation error [Unknown]
  - Product preparation error [Unknown]
  - Device occlusion [Unknown]
